FAERS Safety Report 8911895 (Version 1)
Quarter: 2012Q4

REPORT INFORMATION
  Report Type: Report from Study
  Country: CA (occurrence: CA)
  Receive Date: 20121116
  Receipt Date: 20121116
  Transmission Date: 20130627
  Serious: Yes (Other)
  Sender: FDA-Public Use
  Company Number: CA-JNJFOC-20121104800

PATIENT
  Sex: Female
  Weight: 65 kg

DRUGS (3)
  1. REMICADE [Suspect]
     Indication: COLITIS ULCERATIVE
     Route: 042
     Dates: start: 20080630
  2. ANTI-ASTHMATICS [Concomitant]
     Indication: ASTHMA
     Route: 055
  3. IMURAN [Concomitant]
     Route: 048

REACTIONS (2)
  - Pneumonia [Recovered/Resolved]
  - Asthma [Unknown]
